FAERS Safety Report 20912723 (Version 1)
Quarter: 2022Q2

REPORT INFORMATION
  Report Type: Spontaneous
  Country: US (occurrence: US)
  Receive Date: 20220603
  Receipt Date: 20220603
  Transmission Date: 20220721
  Serious: Yes (Other)
  Sender: FDA-Public Use
  Company Number: US-PURDUE-USA-2022-0294187

PATIENT

DRUGS (2)
  1. LIDOCAINE [Suspect]
     Active Substance: LIDOCAINE
     Indication: Migraine
     Dosage: 1 MG/MIN
     Route: 042
  2. LIDOCAINE [Suspect]
     Active Substance: LIDOCAINE
     Dosage: 4 MG/MIN
     Route: 042

REACTIONS (15)
  - Cerebrovascular accident [Unknown]
  - Urinary retention [Unknown]
  - Hallucination [Unknown]
  - Cardiovascular disorder [Unknown]
  - Nightmare [Unknown]
  - Sedation [Unknown]
  - Anxiety [Unknown]
  - Visual impairment [Unknown]
  - Somnolence [Unknown]
  - Paraesthesia [Unknown]
  - Dizziness [Unknown]
  - Nausea [Unknown]
  - Vomiting [Unknown]
  - Unevaluable event [Unknown]
  - Therapy partial responder [Unknown]
